FAERS Safety Report 7734257-6 (Version None)
Quarter: 2011Q3

REPORT INFORMATION
  Report Type: 
  Country: None (occurrence: None)
  Receive Date: 20110901
  Receipt Date: 20110817
  Transmission Date: 20111222
  Serious: Yes (Other)
  Sender: FDA-Public Use
  Company Number: 2011P1008384

PATIENT
  Age: 82 Year
  Sex: Female
  Weight: 68.0396 kg

DRUGS (3)
  1. PRESCRIPTION SHAMPOO [Concomitant]
     Indication: RASH
  2. FLUOCINONIDE [Suspect]
     Indication: ECZEMA
     Dosage: QD;TOP
     Route: 061
     Dates: start: 20100801, end: 20110517
  3. FLUOCINONIDE [Suspect]
     Indication: PRURITUS
     Dosage: QD;TOP
     Route: 061
     Dates: start: 20100801, end: 20110517

REACTIONS (3)
  - RASH [None]
  - EPHELIDES [None]
  - MYOCARDIAL INFARCTION [None]
